FAERS Safety Report 22391065 (Version 1)
Quarter: 2023Q2

REPORT INFORMATION
  Report Type: Report from Study
  Country: CA (occurrence: CA)
  Receive Date: 20230601
  Receipt Date: 20230601
  Transmission Date: 20230722
  Serious: Yes (Other)
  Sender: FDA-Public Use
  Company Number: CA-CELLTRION INC.-2023CA010067

PATIENT

DRUGS (2)
  1. TRUXIMA [Suspect]
     Active Substance: RITUXIMAB-ABBS
     Indication: Undifferentiated connective tissue disease
     Dosage: 1000 MG (FREQUENCY: INFUSION#4)
     Route: 042
     Dates: start: 20220405, end: 20221115
  2. TRUXIMA [Suspect]
     Active Substance: RITUXIMAB-ABBS
     Indication: Interstitial lung disease

REACTIONS (2)
  - Lung transplant [Unknown]
  - Intentional product use issue [Unknown]
